FAERS Safety Report 11054652 (Version 1)
Quarter: 2015Q2

REPORT INFORMATION
  Report Type: Spontaneous
  Country: US (occurrence: US)
  Receive Date: 20150422
  Receipt Date: 20150422
  Transmission Date: 20150821
  Serious: Yes (Other)
  Sender: FDA-Public Use
  Company Number: US-JNJFOC-2010012556

PATIENT
  Age: 11 Year
  Sex: Male
  Weight: 38.6 kg

DRUGS (3)
  1. TYLENOL [Suspect]
     Active Substance: ACETAMINOPHEN
     Indication: PYREXIA
     Dosage: DAILY DOSE TEXT: UNSPECIFIED
     Route: 048
  2. CHILDRENS ZYRTEC ALLERGY [Suspect]
     Active Substance: CETIRIZINE HYDROCHLORIDE
     Route: 048
  3. CHILDRENS ZYRTEC ALLERGY [Suspect]
     Active Substance: CETIRIZINE HYDROCHLORIDE
     Indication: HEADACHE
     Dosage: DAILY DOSE TEXT: 4ML ONCE A DAY
     Route: 048
     Dates: start: 20100325, end: 20100329

REACTIONS (10)
  - Off label use [Recovering/Resolving]
  - Dyspnoea [Recovering/Resolving]
  - Palpitations [Recovering/Resolving]
  - Rash [Recovering/Resolving]
  - Gait disturbance [Recovering/Resolving]
  - Skin exfoliation [Recovering/Resolving]
  - Mydriasis [Recovering/Resolving]
  - Eye swelling [Recovering/Resolving]
  - Arthralgia [Not Recovered/Not Resolved]
  - Product quality issue [Unknown]

NARRATIVE: CASE EVENT DATE: 20100326
